FAERS Safety Report 8215526-2 (Version None)
Quarter: 2012Q1

REPORT INFORMATION
  Report Type: 
  Country: None (occurrence: None)
  Receive Date: 20120316
  Receipt Date: 20120306
  Transmission Date: 20120608
  Serious: Yes (Other)
  Sender: FDA-Public Use
  Company Number: CA-JNJFOC-20120302614

PATIENT
  Sex: Male
  Weight: 63.6 kg

DRUGS (3)
  1. REMICADE [Suspect]
     Indication: COLITIS ULCERATIVE
     Dosage: 12TH INFUSION
     Route: 042
     Dates: start: 20120306
  2. IMURAN [Concomitant]
     Route: 048
  3. REMICADE [Suspect]
     Route: 042
     Dates: start: 20100901

REACTIONS (1)
  - WISDOM TEETH REMOVAL [None]
